FAERS Safety Report 4716393-1 (Version None)
Quarter: 2005Q3

REPORT INFORMATION
  Report Type: 
  Country: None (occurrence: None)
  Receive Date: 20050713
  Receipt Date: 20050701
  Transmission Date: 20060218
  Serious: Yes (Hospitalization, Other)
  Sender: FDA-Public Use
  Company Number: KII-2005-0017366

PATIENT
  Age: 46 Year
  Sex: Male

DRUGS (4)
  1. HYDROMORPHONE HCL [Suspect]
     Dosage: ORAL
     Route: 048
  2. BETA BLOCKING AGENTS () [Suspect]
     Dosage: ORAL
     Route: 048
  3. ETHANOL (ETHANOL) [Suspect]
     Dosage: ORAL
     Route: 048
  4. COCAINE (COCAINE) [Suspect]

REACTIONS (5)
  - COMA [None]
  - DRUG ABUSER [None]
  - HYPOTENSION [None]
  - LUNG INFILTRATION [None]
  - MIOSIS [None]
